FAERS Safety Report 8200889-4 (Version None)
Quarter: 2012Q1

REPORT INFORMATION
  Report Type: 
  Country: None (occurrence: None)
  Receive Date: 20120312
  Receipt Date: 20110517
  Transmission Date: 20120608
  Serious: No
  Sender: FDA-Public Use
  Company Number: US-ABBOTT-11P-163-0726477-00

PATIENT
  Sex: Female
  Weight: 70.37 kg

DRUGS (2)
  1. NORETHINDRONE [Concomitant]
     Indication: ENDOMETRIOSIS
     Dosage: ADD-BACK THERAPY
  2. LUPRON DEPOT [Suspect]
     Indication: ENDOMETRIOSIS
     Route: 030
     Dates: start: 20110201

REACTIONS (7)
  - UTERINE SPASM [None]
  - FEELING ABNORMAL [None]
  - NIGHT SWEATS [None]
  - VAGINAL HAEMORRHAGE [None]
  - HOT FLUSH [None]
  - VAGINAL DISCHARGE [None]
  - MALAISE [None]
